FAERS Safety Report 18044477 (Version 1)
Quarter: 2020Q3

REPORT INFORMATION
  Report Type: Spontaneous
  Country: US (occurrence: US)
  Receive Date: 20200720
  Receipt Date: 20200720
  Transmission Date: 20201103
  Serious: Yes (Other)
  Sender: FDA-Public Use
  Company Number: None

PATIENT
  Age: 13 Year
  Sex: Male
  Weight: 56.25 kg

DRUGS (1)
  1. ZENATANE [Suspect]
     Active Substance: ISOTRETINOIN
     Indication: ACNE
     Dates: start: 20200621, end: 20200719

REACTIONS (6)
  - Lip injury [None]
  - Epistaxis [None]
  - Aggression [None]
  - Amnesia [None]
  - Abnormal sleep-related event [None]
  - Intentional self-injury [None]

NARRATIVE: CASE EVENT DATE: 20200719
